FAERS Safety Report 10780017 (Version 2)
Quarter: 2015Q2

REPORT INFORMATION
  Report Type: Report from Study
  Country: MX (occurrence: MX)
  Receive Date: 20150210
  Receipt Date: 20150429
  Transmission Date: 20150821
  Serious: Yes (Hospitalization, Other)
  Sender: FDA-Public Use
  Company Number: MX-BAYER-2015-010931

PATIENT
  Age: 39 Year
  Sex: Female

DRUGS (1)
  1. BETAFERON [Suspect]
     Active Substance: INTERFERON BETA-1B
     Indication: MULTIPLE SCLEROSIS
     Dosage: 1 DF, QOD
     Route: 058
     Dates: start: 201303

REACTIONS (10)
  - Multiple sclerosis relapse [Recovered/Resolved]
  - Urinary tract infection [Recovering/Resolving]
  - Coordination abnormal [Recovering/Resolving]
  - Pain in extremity [Unknown]
  - Spondylitis [Recovering/Resolving]
  - Sinusitis [Recovering/Resolving]
  - Myalgia [Not Recovered/Not Resolved]
  - Muscle fatigue [Not Recovered/Not Resolved]
  - Muscular weakness [Recovering/Resolving]
  - Back pain [Unknown]

NARRATIVE: CASE EVENT DATE: 201408
